FAERS Safety Report 25281594 (Version 2)
Quarter: 2025Q2

REPORT INFORMATION
  Report Type: Spontaneous
  Country: US (occurrence: US)
  Receive Date: 20250508
  Receipt Date: 20250606
  Transmission Date: 20250717
  Serious: No
  Sender: ABBVIE
  Company Number: US-ABBVIE-6260635

PATIENT

DRUGS (1)
  1. ARMOUR THYROID [Suspect]
     Active Substance: THYROID, PORCINE
     Indication: Hypothyroidism
     Route: 048

REACTIONS (9)
  - Depression [Unknown]
  - Contusion [Unknown]
  - Haemorrhage [Unknown]
  - Joint swelling [Unknown]
  - Crying [Unknown]
  - Frustration tolerance decreased [Unknown]
  - Weight increased [Unknown]
  - Brain fog [Unknown]
  - Laboratory test abnormal [Unknown]
